FAERS Safety Report 9302252 (Version 1)
Quarter: 2013Q2

REPORT INFORMATION
  Report Type: Spontaneous
  Country: US (occurrence: US)
  Receive Date: 20130522
  Receipt Date: 20130522
  Transmission Date: 20140414
  Serious: No
  Sender: FDA-Public Use
  Company Number: US-B.I. PHARMACEUTICALS,INC./RIDGEFIELD-2013-BI-13933BP

PATIENT
  Age: 74 Year
  Sex: Female

DRUGS (7)
  1. PERSANTIN [Suspect]
     Indication: PLATELET ADHESIVENESS INCREASED
     Route: 048
     Dates: start: 20130418, end: 20130508
  2. PERSANTIN [Suspect]
     Indication: BLOOD DISORDER
  3. SYNTHROID [Concomitant]
     Indication: HYPOTHYROIDISM
     Dosage: 50 MCG
     Route: 048
  4. VERAPAMIL [Concomitant]
     Indication: HEART RATE IRREGULAR
     Dosage: 480 MG
     Route: 048
  5. DIOVAN [Concomitant]
     Indication: HYPERTENSION
     Dosage: 80 MG
     Route: 048
  6. ISOBID [Concomitant]
     Indication: PLATELET ADHESIVENESS INCREASED
     Dosage: 30 MG
     Route: 048
  7. ISOBID [Concomitant]
     Indication: BLOOD DISORDER

REACTIONS (9)
  - Local swelling [Recovered/Resolved]
  - Palpitations [Recovered/Resolved]
  - Middle insomnia [Recovered/Resolved]
  - Tremor [Recovered/Resolved]
  - Dyspnoea [Recovered/Resolved]
  - Contusion [Recovered/Resolved]
  - Rash erythematous [Recovered/Resolved]
  - Rash papular [Recovered/Resolved]
  - Contusion [Recovered/Resolved]
